FAERS Safety Report 9940460 (Version 1)
Quarter: 2014Q1

REPORT INFORMATION
  Report Type: Spontaneous
  Country: FR (occurrence: FR)
  Receive Date: 20140303
  Receipt Date: 20140303
  Transmission Date: 20141002
  Serious: Yes (Hospitalization)
  Sender: FDA-Public Use
  Company Number: FR-SA-2014SA021413

PATIENT
  Age: 81 Year
  Sex: Female

DRUGS (8)
  1. STILNOX [Suspect]
     Indication: SLEEP DISORDER
     Route: 048
     Dates: end: 20140204
  2. DAFALGAN CODEINE [Suspect]
     Indication: PAIN
     Route: 048
     Dates: start: 20110601, end: 20140204
  3. INEXIUM [Concomitant]
  4. ALLOPURINOL [Concomitant]
  5. LEVOTHYROX [Concomitant]
  6. HYDREA [Concomitant]
  7. MELAXOSE [Concomitant]
  8. FUROSEMIDE [Concomitant]

REACTIONS (2)
  - General physical health deterioration [Recovered/Resolved]
  - Decreased appetite [Recovered/Resolved]
